FAERS Safety Report 9752077 (Version 2)
Quarter: 2013Q4

REPORT INFORMATION
  Report Type: Report from Study
  Country: CZ (occurrence: CZ)
  Receive Date: 20131213
  Receipt Date: 20131224
  Transmission Date: 20140711
  Serious: Yes (Death)
  Sender: FDA-Public Use
  Company Number: PHHY2013CZ144503

PATIENT
  Sex: Female

DRUGS (2)
  1. EVEROLIMUS [Suspect]
     Indication: RENAL CANCER METASTATIC
     Dates: start: 20110605, end: 20120501
  2. EVEROLIMUS [Suspect]
     Indication: OFF LABEL USE

REACTIONS (1)
  - General physical health deterioration [Fatal]
